FAERS Safety Report 7536778-8 (Version None)
Quarter: 2011Q2

REPORT INFORMATION
  Report Type: 
  Country: None (occurrence: None)
  Receive Date: 20110609
  Receipt Date: 20110607
  Transmission Date: 20111010
  Serious: Yes (Death, Life-Threatening, Hospitalization)
  Sender: FDA-Public Use
  Company Number: BE-PFIZER INC-2009202090

PATIENT
  Sex: Male

DRUGS (17)
  1. ZANTAC [Concomitant]
     Dosage: 300 MG, 1X/DAY
     Dates: end: 20090430
  2. ZYVOX [Concomitant]
     Dosage: UNK
     Dates: end: 20090430
  3. ZINC CHLORIDE [Concomitant]
     Dosage: UNK
  4. PLACEBO [Suspect]
     Indication: ASPERGILLOSIS
     Dosage: UNK
     Route: 042
     Dates: start: 20090317, end: 20090330
  5. VORICONAZOLE [Suspect]
     Indication: BRONCHOPULMONARY ASPERGILLOSIS
     Dosage: UNK
     Route: 042
     Dates: start: 20090317, end: 20090324
  6. AMLODIPINE [Concomitant]
     Dosage: 10 MG, 1X/DAY
  7. BLINDED NO SUBJECT DRUG [Suspect]
     Indication: ASPERGILLOSIS
     Dosage: UNK
     Route: 042
     Dates: start: 20090317, end: 20090330
  8. MEDROL [Concomitant]
     Indication: IMMUNOSUPPRESSION
     Dosage: 2 MG, UNK
     Dates: end: 20090430
  9. INSULATARD [Concomitant]
     Dosage: UNK
  10. BLINDED ANIDULAFUNGIN [Suspect]
     Indication: ASPERGILLOSIS
     Dosage: UNK
     Route: 042
     Dates: start: 20090317, end: 20090330
  11. FOLAVIT [Concomitant]
     Dosage: 4 MG, UNK
     Dates: end: 20090430
  12. NEORAL [Concomitant]
     Indication: IMMUNOSUPPRESSION
     Dosage: 100 MG, 1X/DAY
     Dates: end: 20090430
  13. DOCACICLO [Concomitant]
     Dosage: 800 MG, 3X/DAY
     Dates: end: 20090430
  14. TRAMADOL HCL [Concomitant]
  15. VORICONAZOLE [Suspect]
     Dosage: 300 MG, 2X/DAY
     Route: 048
     Dates: start: 20090325, end: 20090419
  16. NEORAL [Concomitant]
     Dosage: 75 MG, 1X/DAY
  17. INDERAL [Concomitant]
     Indication: HYPERTENSION
     Dosage: 40 MG, 1X/DAY

REACTIONS (2)
  - FEBRILE NEUTROPENIA [None]
  - LUNG INFILTRATION [None]
